FAERS Safety Report 9708749 (Version 1)
Quarter: 2013Q4

REPORT INFORMATION
  Report Type: Spontaneous
  Country: FR (occurrence: FR)
  Receive Date: 20131125
  Receipt Date: 20131125
  Transmission Date: 20140711
  Serious: Yes (Life-Threatening, Hospitalization)
  Sender: FDA-Public Use
  Company Number: FR-GLAXOSMITHKLINE-B0943159A

PATIENT
  Age: 60 Year
  Sex: Male

DRUGS (6)
  1. SERETIDE DISKUS [Suspect]
     Indication: PRODUCT USED FOR UNKNOWN INDICATION
     Dosage: 1PUFF TWICE PER DAY
     Route: 055
  2. ZONEGRAN [Suspect]
     Indication: EPILEPSY
     Dosage: 100MG TWICE PER DAY
     Route: 048
     Dates: start: 20121018, end: 20130105
  3. TEGRETOL [Suspect]
     Indication: EPILEPSY
     Dosage: 400MG TWICE PER DAY
     Route: 048
     Dates: start: 19820626
  4. COKENZEN [Suspect]
     Indication: PRODUCT USED FOR UNKNOWN INDICATION
     Dosage: 16MG IN THE MORNING
     Route: 048
     Dates: end: 201301
  5. TAHOR [Concomitant]
     Dosage: 40MG AT NIGHT
     Route: 048
  6. RHINOCORT [Concomitant]
     Dosage: 1PUFF TWICE PER DAY

REACTIONS (6)
  - Hypokalaemia [Recovered/Resolved]
  - Acute coronary syndrome [Recovered/Resolved]
  - Angina pectoris [Unknown]
  - Headache [Unknown]
  - Arterial disorder [Unknown]
  - Electrocardiogram T wave amplitude decreased [Recovered/Resolved]
